FAERS Safety Report 6030039-4 (Version None)
Quarter: 2009Q1

REPORT INFORMATION
  Report Type: 
  Country: None (occurrence: None)
  Receive Date: 20090107
  Receipt Date: 20081230
  Transmission Date: 20090719
  Serious: Yes (Hospitalization)
  Sender: FDA-Public Use
  Company Number: KR-JNJFOC-20081207161

PATIENT
  Age: 38 Year
  Sex: Female
  Weight: 56 kg

DRUGS (1)
  1. TOPIRAMATE [Suspect]
     Indication: WEIGHT LOSS DIET
     Route: 048

REACTIONS (1)
  - INSULIN AUTOIMMUNE SYNDROME [None]
